FAERS Safety Report 6237352-6 (Version None)
Quarter: 2009Q2

REPORT INFORMATION
  Report Type: 
  Country: None (occurrence: None)
  Receive Date: 20090619
  Receipt Date: 20090609
  Transmission Date: 20091009
  Serious: Yes (Hospitalization, Other)
  Sender: FDA-Public Use
  Company Number: PHHY2009VE22686

PATIENT
  Sex: Male

DRUGS (3)
  1. RITALIN [Suspect]
     Indication: NERVOUS SYSTEM DISORDER
     Dosage: 20 MG, QD
     Dates: start: 20081001, end: 20090101
  2. RITALIN [Suspect]
     Dosage: 10 MG/DAY
     Dates: start: 20090101, end: 20090602
  3. CLONIDINE HCL [Concomitant]
     Dosage: 0.75 MG/DAY

REACTIONS (4)
  - CONVULSION [None]
  - EPILEPSY [None]
  - HALLUCINATION [None]
  - PSYCHOMOTOR HYPERACTIVITY [None]
